FAERS Safety Report 21546116 (Version 1)
Quarter: 2022Q4

REPORT INFORMATION
  Report Type: Report from Study
  Country: US (occurrence: US)
  Receive Date: 20221103
  Receipt Date: 20221103
  Transmission Date: 20230113
  Serious: No
  Sender: FDA-Public Use
  Company Number: US-ABBVIE-22K-163-4530351-00

PATIENT
  Sex: Male

DRUGS (2)
  1. SKYRIZI [Suspect]
     Active Substance: RISANKIZUMAB-RZAA
     Indication: Psoriasis
     Route: 058
  2. MODERNA COVID-19 VACCINE [Concomitant]
     Active Substance: ELASOMERAN
     Indication: COVID-19 immunisation
     Dosage: TIME INTERVAL: 1 TOTAL
     Route: 030

REACTIONS (7)
  - Wrong technique in product usage process [Unknown]
  - Headache [Recovering/Resolving]
  - Fatigue [Recovering/Resolving]
  - Injection site bruising [Recovering/Resolving]
  - Injection site haemorrhage [Unknown]
  - Injection site pain [Recovering/Resolving]
  - Seasonal allergy [Not Recovered/Not Resolved]
